FAERS Safety Report 23454986 (Version 1)
Quarter: 2024Q1

REPORT INFORMATION
  Report Type: Spontaneous
  Country: IT (occurrence: None)
  Receive Date: 20240130
  Receipt Date: 20240130
  Transmission Date: 20240410
  Serious: Yes (Other)
  Sender: FDA-Public Use
  Company Number: 2024A018287

PATIENT
  Age: 22458 Day
  Sex: Male

DRUGS (2)
  1. TAGRISSO [Suspect]
     Active Substance: OSIMERTINIB
     Indication: Lung neoplasm malignant
     Dosage: 80.0MG ONCE/SINGLE ADMINISTRATION
     Route: 048
     Dates: start: 20210114
  2. XGEVA [Suspect]
     Active Substance: DENOSUMAB
     Route: 058
     Dates: start: 20210414

REACTIONS (4)
  - EGFR gene mutation [Not Recovered/Not Resolved]
  - Metastases to lung [Not Recovered/Not Resolved]
  - Palatal disorder [Not Recovered/Not Resolved]
  - Haemosiderosis [Not Recovered/Not Resolved]

NARRATIVE: CASE EVENT DATE: 20230701
